FAERS Safety Report 11004311 (Version 1)
Quarter: 2015Q2

REPORT INFORMATION
  Report Type: Spontaneous
  Country: US (occurrence: None)
  Receive Date: 20150408
  Receipt Date: 20150408
  Transmission Date: 20150821
  Serious: Yes (Hospitalization)
  Sender: FDA-Public Use
  Company Number: None

PATIENT
  Age: 28 Year
  Sex: Female
  Weight: 99.7 kg

DRUGS (2)
  1. FERRLECIT [Suspect]
     Active Substance: SODIUM FERRIC GLUCONATE COMPLEX
     Indication: ANAEMIA
     Route: 042
     Dates: start: 20141216, end: 20141216
  2. PRENATAL VITAMINS [Concomitant]
     Active Substance: VITAMINS

REACTIONS (6)
  - Blood pressure decreased [None]
  - Vomiting [None]
  - Foetal heart rate decreased [None]
  - Syncope [None]
  - Nausea [None]
  - Maternal exposure during pregnancy [None]

NARRATIVE: CASE EVENT DATE: 20141216
